FAERS Safety Report 8915651 (Version 1)
Quarter: 2012Q4

REPORT INFORMATION
  Report Type: 
  Country: CA (occurrence: CA)
  Receive Date: 20121119
  Receipt Date: 20121119
  Transmission Date: 20130627
  Serious: Yes (Hospitalization, Other)
  Sender: FDA-Public Use
  Company Number: CA-NAPPMUNDI-CAN-2012-0003403

PATIENT
  Sex: Female
  Weight: 74.83 kg

DRUGS (16)
  1. OXYNEO 40 MG [Suspect]
     Indication: PAIN
     Dosage: 2 tablet, tid
     Route: 048
     Dates: start: 201205
  2. OXYNEO 40 MG [Suspect]
     Indication: INTERVERTEBRAL DISC DEGENERATION
     Dosage: UNK
     Route: 048
     Dates: start: 201210
  3. OXYNEO 40 MG [Suspect]
     Indication: SPINAL COLUMN STENOSIS
  4. OXYNEO 40 MG [Suspect]
     Indication: OSTEOARTHRITIS
  5. OXYNEO 40 MG [Suspect]
     Indication: INTERVERTEBRAL DISC PROTRUSION
  6. OXYCONTIN TABLETS [Suspect]
     Indication: PAIN
     Dosage: 1 tablet, tid
     Route: 048
     Dates: start: 201205
  7. OXYCONTIN TABLETS [Suspect]
     Indication: INTERVERTEBRAL DISC DEGENERATION
     Dosage: UNK
     Route: 048
     Dates: end: 201210
  8. OXYCONTIN TABLETS [Suspect]
     Indication: SPINAL COLUMN STENOSIS
  9. OXYCONTIN TABLETS [Suspect]
     Indication: OSTEOARTHRITIS
  10. OXYCONTIN TABLETS [Suspect]
     Indication: INTERVERTEBRAL DISC PROTRUSION
  11. HYDROMORPHONE HCL [Suspect]
     Indication: PAIN
     Dosage: UNK Capsl, UNK
     Route: 048
  12. HYDROMORPHONE HCL [Suspect]
     Indication: INTERVERTEBRAL DISC DEGENERATION
  13. HYDROMORPHONE HCL [Suspect]
     Indication: SPINAL COLUMN STENOSIS
  14. HYDROMORPHONE HCL [Suspect]
     Indication: OSTEOARTHRITIS
  15. HYDROMORPHONE HCL [Suspect]
     Indication: INTERVERTEBRAL DISC PROTRUSION
  16. MORPHINE SULFATE [Suspect]
     Route: 048

REACTIONS (5)
  - Hallucination, visual [Not Recovered/Not Resolved]
  - Malaise [Unknown]
  - Abdominal pain upper [Not Recovered/Not Resolved]
  - Nightmare [Not Recovered/Not Resolved]
  - Speech disorder [Not Recovered/Not Resolved]
